FAERS Safety Report 7492331-6 (Version None)
Quarter: 2011Q2

REPORT INFORMATION
  Report Type: 
  Country: None (occurrence: None)
  Receive Date: 20110519
  Receipt Date: 20110518
  Transmission Date: 20111010
  Serious: Yes (Hospitalization, Disabling)
  Sender: FDA-Public Use
  Company Number: US-CEPHALON-2011001432

PATIENT
  Sex: Female
  Weight: 77 kg

DRUGS (26)
  1. EFFIENT [Concomitant]
     Dates: start: 20110201
  2. CLARINEX [Concomitant]
  3. VITAMIN D [Concomitant]
  4. FERROUS SULFATE TAB [Concomitant]
  5. ASPIRIN [Concomitant]
  6. NITROGLYCERINE PUMP [Concomitant]
  7. XANAX [Concomitant]
  8. PHENERGAN HCL [Concomitant]
  9. PHRENLIN [Concomitant]
  10. ISOSORBIDE DINITRATE [Concomitant]
  11. TYLENOL (CAPLET) [Concomitant]
  12. LOVAZA [Concomitant]
  13. NITROSTAT [Concomitant]
  14. PRILOSEC DR [Concomitant]
  15. AMBIEN [Concomitant]
  16. NUVIGIL [Suspect]
     Indication: FIBROMYALGIA
     Route: 048
     Dates: end: 20110316
  17. LISINOPRIL [Concomitant]
  18. HUMULIN N [Concomitant]
  19. SAVELLA [Concomitant]
  20. STOOL SOFTENER [Concomitant]
  21. LIDODERM [Concomitant]
  22. PROAIR HFA [Concomitant]
  23. PROVIGIL [Suspect]
     Indication: FIBROMYALGIA
     Route: 048
     Dates: end: 20110101
  24. NEURONTIN [Concomitant]
     Dates: start: 20110201
  25. LIPITOR [Concomitant]
  26. METOPROLOL TARTRATE [Concomitant]

REACTIONS (1)
  - DYSTONIA [None]
